FAERS Safety Report 7480902-2 (Version None)
Quarter: 2011Q2

REPORT INFORMATION
  Report Type: 
  Country: None (occurrence: None)
  Receive Date: 20110512
  Receipt Date: 20110512
  Transmission Date: 20111010
  Serious: Yes (Other)
  Sender: FDA-Public Use
  Company Number: None

PATIENT
  Sex: Male
  Weight: 73.4827 kg

DRUGS (1)
  1. DIOVAN HCT [Suspect]
     Indication: CARDIOMYOPATHY
     Dosage: 320-12.5 1 DAILY ORAL
     Route: 048

REACTIONS (5)
  - DIARRHOEA [None]
  - NASOPHARYNGITIS [None]
  - HYPOTENSION [None]
  - COUGH [None]
  - DIZZINESS [None]
